FAERS Safety Report 7989328-6 (Version None)
Quarter: 2011Q4

REPORT INFORMATION
  Report Type: 
  Country: None (occurrence: None)
  Receive Date: 20111219
  Receipt Date: 20111207
  Transmission Date: 20120403
  Serious: Yes (Hospitalization)
  Sender: FDA-Public Use
  Company Number: IT-BAYER-2011-113465

PATIENT
  Age: 51 Year
  Sex: Female
  Weight: 50.1 kg

DRUGS (3)
  1. PAROXETINE HYDROCHLORIDE [Concomitant]
     Indication: DEPRESSION
     Dosage: DAILY DOSE 10 MG
     Route: 048
  2. SORAFENIB (RAF KINASE INHIBITOR) [Suspect]
     Dosage: 400 MG, QD
     Route: 048
     Dates: end: 20111122
  3. SORAFENIB (RAF KINASE INHIBITOR) [Suspect]
     Indication: METASTATIC SALIVARY GLAND CANCER
     Dosage: 400 MG, BID
     Route: 048
     Dates: start: 20111014

REACTIONS (5)
  - ACUTE FEBRILE NEUTROPHILIC DERMATOSIS [None]
  - ERYTHEMA [None]
  - NODULE [None]
  - STOMATITIS [None]
  - PYREXIA [None]
